FAERS Safety Report 7866894-2 (Version None)
Quarter: 2011Q4

REPORT INFORMATION
  Report Type: 
  Country: None (occurrence: None)
  Receive Date: 20111026
  Receipt Date: 20111014
  Transmission Date: 20120403
  Serious: Yes (Other)
  Sender: FDA-Public Use
  Company Number: JP-2011-11409

PATIENT
  Age: 57 Year
  Sex: Female
  Weight: 57 kg

DRUGS (6)
  1. ASPIRIN [Concomitant]
  2. LANSOPRAZOLE [Concomitant]
  3. PLETAL [Suspect]
     Indication: CEREBRAL ARTERY STENOSIS
     Dosage: 50 MG MILLIGRAM(S), BID, ORAL 100 MG MILLIGRAM(S), BID, ORAL
     Route: 048
     Dates: start: 20110428, end: 20110630
  4. PLETAL [Suspect]
     Indication: CEREBRAL ARTERY STENOSIS
     Dosage: 50 MG MILLIGRAM(S), BID, ORAL 100 MG MILLIGRAM(S), BID, ORAL
     Route: 048
     Dates: start: 20110701
  5. CRESTOR [Concomitant]
  6. PREMINENT (HYDROCHLOROTHIAZIDE, LOSARTAN POTASSIUM) [Concomitant]

REACTIONS (4)
  - ALOPECIA [None]
  - MUSCULOSKELETAL STIFFNESS [None]
  - HEADACHE [None]
  - FATIGUE [None]
